FAERS Safety Report 16409279 (Version 1)
Quarter: 2019Q3

REPORT INFORMATION
  Report Type: Spontaneous
  Country: US (occurrence: US)
  Receive Date: 20190607
  Receipt Date: 20190607
  Transmission Date: 20191004
  Serious: Yes (Other)
  Sender: FDA-Public Use
  Company Number: None

PATIENT
  Age: 22 Year
  Sex: Female
  Weight: 70 kg

DRUGS (2)
  1. DIFFERIN TOPICAL RETINOL BIOTIN [Concomitant]
  2. MIRENA [Suspect]
     Active Substance: LEVONORGESTREL

REACTIONS (1)
  - Complication of device removal [None]

NARRATIVE: CASE EVENT DATE: 20190607
